FAERS Safety Report 7231675-X (Version None)
Quarter: 2011Q1

REPORT INFORMATION
  Report Type: 
  Country: None (occurrence: None)
  Receive Date: 20110118
  Receipt Date: 20110105
  Transmission Date: 20110831
  Serious: Yes (Death, Hospitalization, Other)
  Sender: FDA-Public Use
  Company Number: GB-ELI_LILLY_AND_COMPANY-GB201004003806

PATIENT
  Sex: Female
  Weight: 100 kg

DRUGS (12)
  1. METOCLOPRAMIDE [Concomitant]
  2. NORADRENALINE [Concomitant]
     Dosage: 0.1 UG/KG, UNKNOWN
     Route: 042
     Dates: start: 20100403
  3. PARACETAMOL [Concomitant]
     Dosage: 1 G, UNKNOWN
     Route: 042
     Dates: start: 20100329
  4. RIFAMPICIN [Concomitant]
  5. AMIODARONE [Concomitant]
  6. XIGRIS [Suspect]
     Indication: SEPSIS
     Dosage: 2400 UG, EVERY HOUR
     Route: 042
     Dates: start: 20100401
  7. HYDROCORTISONE [Concomitant]
     Indication: SEPSIS
     Dosage: 100 MG, UNKNOWN
     Route: 042
     Dates: start: 20100401
  8. TEICOPLANIN [Concomitant]
     Indication: SEPSIS
     Dosage: 400 MG, UNKNOWN
     Route: 042
     Dates: start: 20100331
  9. HEPARIN [Concomitant]
  10. TAZOCIN [Concomitant]
     Dosage: 4.5 MG, UNKNOWN
     Route: 042
     Dates: start: 20100331
  11. PANTOPRAZOLE [Concomitant]
     Dosage: 40 MG, UNKNOWN
     Route: 042
     Dates: start: 20100401
  12. GENTAMICIN [Concomitant]
     Indication: SEPSIS
     Dosage: 500 MG, UNKNOWN
     Route: 042
     Dates: start: 20100402

REACTIONS (4)
  - BRAIN OEDEMA [None]
  - BRAIN HERNIATION [None]
  - CEREBRAL HAEMORRHAGE [None]
  - SUBARACHNOID HAEMORRHAGE [None]
